FAERS Safety Report 6946002-2 (Version None)
Quarter: 2010Q3

REPORT INFORMATION
  Report Type: 
  Country: None (occurrence: None)
  Receive Date: 20100827
  Receipt Date: 20090728
  Transmission Date: 20110219
  Serious: No
  Sender: FDA-Public Use
  Company Number: A0799128A

PATIENT
  Age: 46 Year
  Sex: Female

DRUGS (20)
  1. ACYCLOVIR SODIUM [Suspect]
     Dosage: 800MG VARIABLE DOSE
     Route: 048
     Dates: start: 20060101
  2. VALTREX [Suspect]
     Dosage: 500MG TWICE PER DAY
     Route: 048
     Dates: start: 20000101
  3. SYNTHROID [Concomitant]
  4. CYTOMEL [Concomitant]
  5. HYDROCORTISONE [Concomitant]
  6. AVAPRO [Concomitant]
  7. HYDROCHLOROTHIAZIDE [Concomitant]
  8. JANUVIA [Concomitant]
  9. PREVACID [Concomitant]
  10. CARAFATE [Concomitant]
  11. SINGULAIR [Concomitant]
  12. ADVAIR DISKUS 100/50 [Concomitant]
  13. PROAIR HFA [Concomitant]
  14. ZYRTEC [Concomitant]
  15. REQUIP [Concomitant]
  16. KLONOPIN [Concomitant]
  17. VITAMIN D [Concomitant]
  18. ZANAFLEX [Concomitant]
  19. VICODIN [Concomitant]
  20. NYSTATIN [Concomitant]

REACTIONS (1)
  - DRUG INEFFECTIVE [None]
